FAERS Safety Report 11110546 (Version 1)
Quarter: 2015Q2

REPORT INFORMATION
  Report Type: Other
  Country: US (occurrence: US)
  Receive Date: 20150513
  Receipt Date: 20150513
  Transmission Date: 20150821
  Serious: Yes (Other)
  Sender: FDA-Public Use
  Company Number: US-ACORDA-ACO_110672_2015

PATIENT
  Age: 30 Year
  Sex: Female
  Weight: 40.36 kg

DRUGS (2)
  1. NEURONTIN [Concomitant]
     Active Substance: GABAPENTIN
     Indication: NEUROPATHY PERIPHERAL
     Dosage: 20 MG, TID
     Route: 048
  2. AMPYRA [Suspect]
     Active Substance: DALFAMPRIDINE
     Indication: GAIT SPASTIC
     Dosage: 10 MG, BID
     Route: 048
     Dates: start: 201403

REACTIONS (3)
  - Vomiting [Unknown]
  - Unresponsive to stimuli [Unknown]
  - Amnesia [Unknown]

NARRATIVE: CASE EVENT DATE: 20150218
